FAERS Safety Report 7565815-X (Version None)
Quarter: 2011Q2

REPORT INFORMATION
  Report Type: 
  Country: None (occurrence: None)
  Receive Date: 20110623
  Receipt Date: 20110617
  Transmission Date: 20111010
  Serious: No
  Sender: FDA-Public Use
  Company Number: US-PFIZER INC-2011137050

PATIENT

DRUGS (1)
  1. PRISTIQ [Suspect]
     Dosage: UNK

REACTIONS (6)
  - SLEEP DISORDER [None]
  - SLUGGISHNESS [None]
  - ARTHRALGIA [None]
  - SOMNOLENCE [None]
  - PAIN OF SKIN [None]
  - PRURITUS [None]
